FAERS Safety Report 24665670 (Version 1)
Quarter: 2024Q4

REPORT INFORMATION
  Report Type: Spontaneous
  Country: US (occurrence: US)
  Receive Date: 20241126
  Receipt Date: 20241126
  Transmission Date: 20250115
  Serious: No
  Sender: PFIZER
  Company Number: US-PFIZER INC-202200821566

PATIENT
  Age: 32 Year
  Sex: Female

DRUGS (4)
  1. XELJANZ [Interacting]
     Active Substance: TOFACITINIB CITRATE
     Dosage: 10 MG, 2X/DAY
     Route: 048
     Dates: start: 202111
  2. ENTYVIO [Interacting]
     Active Substance: VEDOLIZUMAB
     Dosage: 300 MG (VIAL)
     Dates: start: 202202
  3. ZOLOFT [Concomitant]
     Active Substance: SERTRALINE HYDROCHLORIDE
     Dosage: 50 MG
  4. PROBIOTICS NOS [Concomitant]
     Active Substance: PROBIOTICS NOS
     Dosage: 250 MG

REACTIONS (7)
  - Drug interaction [Unknown]
  - Headache [Unknown]
  - COVID-19 [Recovering/Resolving]
  - Immune system disorder [Unknown]
  - Asthenia [Unknown]
  - Food intolerance [Unknown]
  - Loss of personal independence in daily activities [Unknown]

NARRATIVE: CASE EVENT DATE: 20220201
